FAERS Safety Report 7506404-2 (Version None)
Quarter: 2011Q2

REPORT INFORMATION
  Report Type: 
  Country: None (occurrence: None)
  Receive Date: 20110526
  Receipt Date: 20110519
  Transmission Date: 20111010
  Serious: Yes (Death, Hospitalization)
  Sender: FDA-Public Use
  Company Number: TW-ELI_LILLY_AND_COMPANY-TW201105006235

PATIENT
  Sex: Female

DRUGS (2)
  1. OTHER PHARMA COMPANY INV DRUG [Suspect]
     Indication: PANCREATIC CARCINOMA METASTATIC
     Dosage: 2 MG, QD
     Route: 048
     Dates: start: 20110223
  2. GEMCITABINE HYDROCHLORIDE [Suspect]
     Indication: PANCREATIC CARCINOMA METASTATIC
     Dosage: 1000 MG/M2, UNK
     Route: 042
     Dates: start: 20110223, end: 20110406

REACTIONS (2)
  - SEPSIS [None]
  - INTERSTITIAL LUNG DISEASE [None]
